FAERS Safety Report 15202124 (Version 1)
Quarter: 2018Q3

REPORT INFORMATION
  Report Type: Spontaneous
  Country: US (occurrence: US)
  Receive Date: 20180726
  Receipt Date: 20180726
  Transmission Date: 20181010
  Serious: Yes (Other)
  Sender: FDA-Public Use
  Company Number: US-PTC THERAPEUTICS, INC.-US-2018PTC000716

PATIENT
  Sex: Female

DRUGS (2)
  1. EMFLAZA [Suspect]
     Active Substance: DEFLAZACORT
     Dosage: 52 MG, QD
     Route: 048
     Dates: start: 20180301, end: 20180620
  2. EMFLAZA [Suspect]
     Active Substance: DEFLAZACORT
     Indication: MUSCULAR DYSTROPHY
     Dosage: 15 MG, QD
     Route: 048
     Dates: start: 20180620

REACTIONS (2)
  - Optic neuritis [Unknown]
  - Drug ineffective [Unknown]
